FAERS Safety Report 24455679 (Version 2)
Quarter: 2024Q4

REPORT INFORMATION
  Report Type: Spontaneous
  Country: US (occurrence: US)
  Receive Date: 20241017
  Receipt Date: 20241018
  Transmission Date: 20250115
  Serious: No
  Sender: ROCHE
  Company Number: US-ROCHE-3486012

PATIENT
  Age: 86 Year
  Sex: Male
  Weight: 83.91 kg

DRUGS (11)
  1. RITUXAN [Suspect]
     Active Substance: RITUXIMAB
     Indication: Myasthenia gravis
     Dosage: FIRST DOSE WAS 01/NOV/2023 THEN SECOND DOSE 3 WEEKS BEFORE THANKS GIVING
     Route: 042
     Dates: start: 20231101
  2. VALSARTAN [Concomitant]
     Active Substance: VALSARTAN
     Indication: Labile hypertension
     Dosage: 1/2 TABLET IN THE MORNING AND 1/2 TABLET IN THE EVENING
     Route: 048
     Dates: start: 2013
  3. AMBIEN [Concomitant]
     Active Substance: ZOLPIDEM TARTRATE
     Indication: Insomnia
     Dosage: 1 TABLET AT BEDTIME
     Route: 048
     Dates: start: 2003
  4. METAMUCIL [Concomitant]
     Active Substance: PLANTAGO SEED
     Dosage: 2 CAPSULES AT BEDTIME
     Route: 048
     Dates: start: 2023
  5. XANAX [Concomitant]
     Active Substance: ALPRAZOLAM
     Indication: Palpitations
     Dosage: 1/2 TABLET AT BEDTIME AND 1/2 TABLET IN THE MORNINGS
     Route: 048
  6. XANAX [Concomitant]
     Active Substance: ALPRAZOLAM
     Indication: Blood pressure measurement
  7. PREDNISONE [Concomitant]
     Active Substance: PREDNISONE
     Indication: Myasthenia gravis
     Dosage: CURRENT DOSE 40 MG EVERY OTHER DAY
     Route: 048
     Dates: start: 202304
  8. FAMOTIDINE [Concomitant]
     Active Substance: FAMOTIDINE
     Dosage: 1 TABLET EACH MORNING
     Route: 048
  9. PANTOPRAZOLE SODIUM [Concomitant]
     Active Substance: PANTOPRAZOLE SODIUM
     Dosage: EACH MORNING
     Route: 048
  10. VIAGRA [Concomitant]
     Active Substance: SILDENAFIL CITRATE
     Route: 048
     Dates: start: 2003
  11. TAMSULOSIN [Concomitant]
     Active Substance: TAMSULOSIN
     Dosage: 1 CAPSULE AT BEDTIME
     Route: 048
     Dates: start: 2021

REACTIONS (2)
  - Off label use [Unknown]
  - Tinnitus [Not Recovered/Not Resolved]

NARRATIVE: CASE EVENT DATE: 20231101
